FAERS Safety Report 8014050-X (Version None)
Quarter: 2011Q4

REPORT INFORMATION
  Report Type: 
  Country: None (occurrence: None)
  Receive Date: 20111229
  Receipt Date: 20111221
  Transmission Date: 20120403
  Serious: Yes (Hospitalization, Other)
  Sender: FDA-Public Use
  Company Number: US-BAYER-2011-068173

PATIENT
  Sex: Female
  Weight: 53.968 kg

DRUGS (13)
  1. FLAXSEED OIL [Concomitant]
     Dosage: UNK
     Dates: start: 20020419, end: 20080413
  2. FISH OIL [Concomitant]
     Dosage: UNK
     Dates: start: 20070611, end: 20070726
  3. LORATADINE [Concomitant]
     Dosage: 10 MG, UNK
     Dates: start: 20070611, end: 20080415
  4. YASMIN [Suspect]
     Indication: CONTRACEPTION
     Dosage: UNK
     Dates: start: 20030101, end: 20080601
  5. ASTELIN [Concomitant]
     Dosage: 1 TO 2 SPRAYS IN EACH NOSTRIL DAILY TO TWICE DAILY AS NEEDED
     Route: 055
     Dates: start: 20040724, end: 20110126
  6. IBUPROFEN (ADVIL) [Concomitant]
     Dosage: UNK
     Dates: start: 20050101
  7. LOVAZA [Concomitant]
  8. CALCIUM ACETATE [Concomitant]
     Dosage: 600 MG, BID
     Dates: start: 20020419, end: 20080413
  9. MULTI-VITAMIN [Concomitant]
     Dosage: UNK
     Dates: start: 20020419, end: 20080413
  10. METAMUCIL-2 [Concomitant]
  11. AMITRIPTYLINE [Concomitant]
     Dosage: 25 TO 50MG AT BEDTIME
     Route: 048
     Dates: start: 20060802, end: 20080511
  12. ACIPHEX [Concomitant]
     Dosage: 20 MG, QD
     Route: 048
     Dates: start: 20070709, end: 20090124
  13. GAS-X [Concomitant]

REACTIONS (11)
  - DEFORMITY [None]
  - PAIN [None]
  - ADDISON'S DISEASE [None]
  - HEART RATE IRREGULAR [None]
  - CHOLECYSTITIS [None]
  - HYPOTHALAMO-PITUITARY DISORDER [None]
  - ANXIETY [None]
  - ADRENAL INSUFFICIENCY [None]
  - DEPRESSION [None]
  - HYPOTHYROIDISM [None]
  - ANHEDONIA [None]
